FAERS Safety Report 6660149-X (Version None)
Quarter: 2010Q1

REPORT INFORMATION
  Report Type: 
  Country: None (occurrence: None)
  Receive Date: 20100331
  Receipt Date: 20100315
  Transmission Date: 20100710
  Serious: No
  Sender: FDA-Public Use
  Company Number: 2009BI015541

PATIENT
  Age: 40 Year
  Sex: Female

DRUGS (2)
  1. TYSABRI [Suspect]
     Indication: MULTIPLE SCLEROSIS
     Route: 042
     Dates: start: 20090319
  2. METHYLPHENIDATE [Concomitant]

REACTIONS (7)
  - ASTHENIA [None]
  - BLADDER DYSFUNCTION [None]
  - CARBON MONOXIDE POISONING [None]
  - DYSGEUSIA [None]
  - EXPOSURE TO TOXIC AGENT [None]
  - LETHARGY [None]
  - OESOPHAGEAL DISORDER [None]
